FAERS Safety Report 9254176 (Version 4)
Quarter: 2014Q2

REPORT INFORMATION
  Report Type: Spontaneous
  Country: JP (occurrence: JP)
  Receive Date: 20130425
  Receipt Date: 20140423
  Transmission Date: 20141212
  Serious: Yes (Hospitalization, Other)
  Sender: FDA-Public Use
  Company Number: PHHY2013JP013859

PATIENT
  Age: 33 Year
  Sex: Male
  Weight: 77 kg

DRUGS (2)
  1. GILENYA [Suspect]
     Indication: MULTIPLE SCLEROSIS
     Dosage: 0.5 MG, QD
     Route: 048
     Dates: start: 20120517
  2. PRIDOL [Concomitant]
     Indication: MULTIPLE SCLEROSIS
     Dosage: 1 G, UNK
     Route: 042
     Dates: start: 201111, end: 20120914

REACTIONS (13)
  - Multiple sclerosis relapse [Recovered/Resolved]
  - Hypoaesthesia [Unknown]
  - Gait spastic [Unknown]
  - CSF myelin basic protein increased [Unknown]
  - Central nervous system lesion [Unknown]
  - CSF immunoglobulin increased [Unknown]
  - Pleocytosis [Unknown]
  - Neutrophil percentage increased [Unknown]
  - White blood cell count decreased [Recovered/Resolved]
  - Lymphocyte count decreased [Unknown]
  - Blood pressure diastolic decreased [Unknown]
  - Gamma-glutamyltransferase increased [Recovering/Resolving]
  - Drug ineffective [Unknown]
